FAERS Safety Report 23288061 (Version 3)
Quarter: 2025Q4

REPORT INFORMATION
  Report Type: Report from Study
  Country: EU (occurrence: EU)
  Receive Date: 20231212
  Receipt Date: 20251217
  Transmission Date: 20260118
  Serious: Yes (Other)
  Sender: ABBVIE
  Company Number: EU-ABBVIE-5532459

PATIENT
  Age: 65 Year

DRUGS (2)
  1. VENETOCLAX [Suspect]
     Active Substance: VENETOCLAX
     Indication: Acute myeloid leukaemia
     Dosage: CYCLE 1
     Route: 048
  2. AZACITIDINE [Suspect]
     Active Substance: AZACITIDINE
     Indication: Acute myeloid leukaemia
     Dosage: CYCLE 1
     Route: 065

REACTIONS (6)
  - Bronchiolitis [Unknown]
  - Septic embolus [Unknown]
  - Systemic candida [Unknown]
  - Periorbital cellulitis [Unknown]
  - Sinusitis [Unknown]
  - Conjunctivitis [Unknown]
